FAERS Safety Report 16893893 (Version 1)
Quarter: 2019Q4

REPORT INFORMATION
  Report Type: Spontaneous
  Country: GB (occurrence: GB)
  Receive Date: 20191008
  Receipt Date: 20191008
  Transmission Date: 20200122
  Serious: Yes (Death)
  Sender: FDA-Public Use
  Company Number: GB-MYLANLABS-2019M1092488

PATIENT
  Age: 98 Year
  Sex: Female

DRUGS (2)
  1. CLARITHROMYCIN. [Suspect]
     Active Substance: CLARITHROMYCIN
     Indication: PNEUMONIA
     Dosage: 500 MILLIGRAM
     Route: 048
     Dates: start: 20181203, end: 20181209
  2. DIGOXIN. [Interacting]
     Active Substance: DIGOXIN
     Indication: CARDIAC FAILURE
     Dosage: UNK

REACTIONS (5)
  - Death [Fatal]
  - Toxicity to various agents [Not Recovered/Not Resolved]
  - Labelled drug-drug interaction medication error [Unknown]
  - Nausea [Not Recovered/Not Resolved]
  - Vomiting [Not Recovered/Not Resolved]

NARRATIVE: CASE EVENT DATE: 20181210
